FAERS Safety Report 15714271 (Version 1)
Quarter: 2018Q4

REPORT INFORMATION
  Report Type: Report from Study
  Country: FR (occurrence: FR)
  Receive Date: 20181212
  Receipt Date: 20181212
  Transmission Date: 20190205
  Serious: Yes (Hospitalization, Other)
  Sender: FDA-Public Use
  Company Number: FR-SHIRE-FR201847680

PATIENT

DRUGS (5)
  1. COPPER [Concomitant]
     Active Substance: COPPER
     Indication: SUPPLEMENTATION THERAPY
  2. SELENIUM [Concomitant]
     Active Substance: SELENIUM
     Indication: SUPPLEMENTATION THERAPY
  3. TEDUGLUTIDE [Suspect]
     Active Substance: TEDUGLUTIDE
     Indication: SHORT-BOWEL SYNDROME
     Dosage: 3.3 MG, 1X/DAY:QD
     Route: 065
     Dates: start: 20160324
  4. RUBOZINC [Concomitant]
     Active Substance: ZINC GLUCONATE
     Indication: SUPPLEMENTATION THERAPY
  5. SODIUM BICARBONATE. [Concomitant]
     Active Substance: SODIUM BICARBONATE
     Indication: SUPPLEMENTATION THERAPY

REACTIONS (4)
  - Malnutrition [Not Recovered/Not Resolved]
  - Colitis [Not Recovered/Not Resolved]
  - Device related infection [Not Recovered/Not Resolved]
  - Respiratory distress [Not Recovered/Not Resolved]

NARRATIVE: CASE EVENT DATE: 201811
